FAERS Safety Report 19238500 (Version 2)
Quarter: 2021Q2

REPORT INFORMATION
  Report Type: Spontaneous
  Country: US (occurrence: US)
  Receive Date: 20210510
  Receipt Date: 20210510
  Transmission Date: 20210717
  Serious: Yes (Hospitalization)
  Sender: FDA-Public Use
  Company Number: US-ALKERMES INC.-ALK-2021-002180

PATIENT
  Age: 44 Year
  Sex: Female
  Weight: 104.31 kg

DRUGS (7)
  1. ARISTADA INITIO [Suspect]
     Active Substance: ARIPIPRAZOLE LAUROXIL
     Dosage: 675 MILLIGRAM, ONE TIME DOSE
     Route: 030
  2. ARISTADA INITIO [Suspect]
     Active Substance: ARIPIPRAZOLE LAUROXIL
     Indication: SCHIZOAFFECTIVE DISORDER
     Dosage: 675 MILLIGRAM, ONE TIME DOSE
     Route: 058
     Dates: start: 202104, end: 202104
  3. ARISTADA [Suspect]
     Active Substance: ARIPIPRAZOLE LAUROXIL
     Indication: SCHIZOAFFECTIVE DISORDER
     Dosage: 1064 MILLIGRAM, Q2MO
     Route: 058
     Dates: start: 202104
  4. SUBOXONE [Concomitant]
     Active Substance: BUPRENORPHINE HYDROCHLORIDE\NALOXONE HYDROCHLORIDE
     Indication: PRODUCT USED FOR UNKNOWN INDICATION
     Dosage: UNK
     Route: 065
  5. DEPAKOTE [Concomitant]
     Active Substance: DIVALPROEX SODIUM
     Indication: PRODUCT USED FOR UNKNOWN INDICATION
     Dosage: UNK
     Route: 065
  6. COGENTIN [Concomitant]
     Active Substance: BENZTROPINE MESYLATE
     Indication: PRODUCT USED FOR UNKNOWN INDICATION
     Dosage: UNK
     Route: 065
  7. ARISTADA [Suspect]
     Active Substance: ARIPIPRAZOLE LAUROXIL
     Dosage: 1064 MILLIGRAM, Q2MO
     Route: 030

REACTIONS (16)
  - Fall [Recovered/Resolved]
  - Hallucination [Unknown]
  - Toe walking [Unknown]
  - Vision blurred [Unknown]
  - Headache [Unknown]
  - Oculogyric crisis [Unknown]
  - Injection site swelling [Unknown]
  - Hallucination, auditory [Unknown]
  - Schizoaffective disorder [Recovered/Resolved]
  - Facial pain [Unknown]
  - Incorrect route of product administration [Recovered/Resolved]
  - COVID-19 [Unknown]
  - Dizziness [Unknown]
  - Pain in jaw [Unknown]
  - Off label use [Not Recovered/Not Resolved]
  - Muscular weakness [Unknown]

NARRATIVE: CASE EVENT DATE: 202104
